FAERS Safety Report 6557113-8 (Version None)
Quarter: 2010Q1

REPORT INFORMATION
  Report Type: 
  Country: None (occurrence: None)
  Receive Date: 20100128
  Receipt Date: 20100118
  Transmission Date: 20100710
  Serious: Yes (Other)
  Sender: FDA-Public Use
  Company Number: SE-AMGEN-US233643

PATIENT
  Sex: Female

DRUGS (10)
  1. ENBREL [Suspect]
     Indication: JUVENILE ARTHRITIS
     Dosage: UNSPECIFIED
     Route: 058
     Dates: start: 19990730
  2. LANSOPRAZOLE [Concomitant]
     Route: 065
  3. KALCIPOS [Concomitant]
     Route: 065
  4. LOSEC [Concomitant]
     Route: 065
  5. METHOTREXATE [Concomitant]
     Route: 065
  6. ACETAMINOPHEN [Concomitant]
     Route: 065
  7. LUNELAX [Concomitant]
     Route: 065
  8. DEXOFEN [Concomitant]
     Route: 065
  9. SELOKEN [Concomitant]
     Route: 065
  10. ALGANEX [Concomitant]
     Route: 065

REACTIONS (6)
  - ADVERSE EVENT [None]
  - GASTROINTESTINAL DISORDER [None]
  - HYPERCALCAEMIA [None]
  - INFECTION SUSCEPTIBILITY INCREASED [None]
  - LYMPHOMA [None]
  - PLEURISY [None]
